FAERS Safety Report 16651669 (Version 5)
Quarter: 2020Q3

REPORT INFORMATION
  Report Type: Spontaneous
  Country: US (occurrence: US)
  Receive Date: 20190731
  Receipt Date: 20200730
  Transmission Date: 20201102
  Serious: Yes (Hospitalization, Other)
  Sender: FDA-Public Use
  Company Number: US-LEXICON PHARMACEUTICALS, INC-19-1606-00747

PATIENT
  Age: 36 Year
  Sex: Female

DRUGS (5)
  1. TELOTRISTAT ETHYL [Suspect]
     Active Substance: TELOTRISTAT ETHYL
     Route: 048
  2. SANDOSTATIN [Concomitant]
     Active Substance: OCTREOTIDE ACETATE
  3. TELOTRISTAT ETHYL [Suspect]
     Active Substance: TELOTRISTAT ETHYL
  4. AUSTEDO [Concomitant]
     Active Substance: DEUTETRABENAZINE
  5. TELOTRISTAT ETHYL [Suspect]
     Active Substance: TELOTRISTAT ETHYL
     Indication: CARCINOID SYNDROME
     Route: 048
     Dates: start: 20190626

REACTIONS (16)
  - Malaise [Not Recovered/Not Resolved]
  - Pain [Unknown]
  - Migraine [Not Recovered/Not Resolved]
  - Dizziness [Recovering/Resolving]
  - Flushing [Unknown]
  - Dehydration [Unknown]
  - Muscle spasms [Unknown]
  - Decreased appetite [Unknown]
  - Pancreatitis chronic [Unknown]
  - Dyspnoea [Unknown]
  - Abdominal pain [Unknown]
  - Diarrhoea [Not Recovered/Not Resolved]
  - Swelling [Unknown]
  - Fatigue [Unknown]
  - Deep vein thrombosis [Unknown]
  - Vomiting [Unknown]
